FAERS Safety Report 10076715 (Version 1)
Quarter: 2014Q2

REPORT INFORMATION
  Report Type: Spontaneous
  Country: US (occurrence: None)
  Receive Date: 20140411
  Receipt Date: 20140411
  Transmission Date: 20141212
  Serious: Yes (Disabling)
  Sender: FDA-Public Use
  Company Number: None

PATIENT
  Age: 39 Year
  Sex: Female
  Weight: 104.33 kg

DRUGS (2)
  1. CIPROFLOXACIN [Suspect]
     Indication: VAGINAL INFECTION
     Route: 048
     Dates: start: 20140304, end: 20140313
  2. CIPROFLOXACIN [Suspect]
     Indication: BACTERIAL INFECTION
     Route: 048
     Dates: start: 20140304, end: 20140313

REACTIONS (2)
  - Myalgia [None]
  - Arthralgia [None]
